FAERS Safety Report 7373346-5 (Version None)
Quarter: 2011Q1

REPORT INFORMATION
  Report Type: 
  Country: None (occurrence: None)
  Receive Date: 20110324
  Receipt Date: 20110315
  Transmission Date: 20110831
  Serious: Yes (Hospitalization, Other)
  Sender: FDA-Public Use
  Company Number: US-AMGEN-USASP2011014218

PATIENT
  Age: 75 Year
  Sex: Male

DRUGS (2)
  1. ENBREL [Suspect]
     Indication: PSORIATIC ARTHROPATHY
  2. ENBREL [Suspect]
     Indication: PSORIASIS
     Dosage: 50 MG, QWK
     Dates: start: 20040709, end: 20110101

REACTIONS (7)
  - RECTAL FISSURE [None]
  - LUNG NEOPLASM MALIGNANT [None]
  - PSORIASIS [None]
  - CAROTID ENDARTERECTOMY [None]
  - FATIGUE [None]
  - RECTAL HAEMORRHAGE [None]
  - PSORIATIC ARTHROPATHY [None]
